FAERS Safety Report 10647314 (Version 2)
Quarter: 2015Q1

REPORT INFORMATION
  Report Type: Report from Study
  Country: US (occurrence: US)
  Receive Date: 20141211
  Receipt Date: 20150126
  Transmission Date: 20150720
  Serious: Yes (Hospitalization, Other)
  Sender: FDA-Public Use
  Company Number: US-ABBVIE-14K-163-1318155-00

PATIENT
  Sex: Male
  Weight: 97.61 kg

DRUGS (4)
  1. HUMIRA [Suspect]
     Active Substance: ADALIMUMAB
     Indication: COLITIS ULCERATIVE
     Route: 065
     Dates: start: 2010, end: 2010
  2. XIFAXAN [Concomitant]
     Active Substance: RIFAXIMIN
     Indication: COLITIS ULCERATIVE
  3. ENTOCORT [Concomitant]
     Active Substance: BUDESONIDE
     Indication: COLITIS ULCERATIVE
  4. CIPRO [Concomitant]
     Active Substance: CIPROFLOXACIN HYDROCHLORIDE
     Indication: COLITIS ULCERATIVE

REACTIONS (6)
  - Postoperative wound infection [Recovered/Resolved]
  - Hernia [Recovered/Resolved]
  - Pouchitis [Not Recovered/Not Resolved]
  - Colitis ulcerative [Unknown]
  - Drug ineffective [Recovered/Resolved]
  - Tooth infection [Recovered/Resolved]

NARRATIVE: CASE EVENT DATE: 2011
